FAERS Safety Report 7683313-X (Version None)
Quarter: 2011Q3

REPORT INFORMATION
  Report Type: 
  Country: None (occurrence: None)
  Receive Date: 20110815
  Receipt Date: 20110810
  Transmission Date: 20111222
  Serious: Yes (Other)
  Sender: FDA-Public Use
  Company Number: GB-GLAXOSMITHKLINE-B0738880A

PATIENT
  Age: 79 Year
  Sex: Female

DRUGS (11)
  1. RIVASTIGMINE [Concomitant]
  2. QUETIAPINE [Concomitant]
  3. REQUIP [Suspect]
     Indication: PARKINSON'S DISEASE
     Dosage: 2MG THREE TIMES PER DAY
     Route: 048
  4. AMANTADINE HCL [Concomitant]
  5. ASPIRIN [Concomitant]
  6. SIMVASTATIN [Concomitant]
  7. SANDOCAL [Concomitant]
  8. DOMPERIDONE [Concomitant]
  9. REQUIP XL [Suspect]
     Indication: PARKINSON'S DISEASE
     Route: 048
  10. STALEVO 100 [Concomitant]
  11. DIGOXIN [Concomitant]

REACTIONS (2)
  - HALLUCINATION, VISUAL [None]
  - FEAR [None]
